FAERS Safety Report 8263083-7 (Version None)
Quarter: 2012Q1

REPORT INFORMATION
  Report Type: 
  Country: None (occurrence: None)
  Receive Date: 20120327
  Receipt Date: 20110418
  Transmission Date: 20120608
  Serious: Yes (Other)
  Sender: FDA-Public Use
  Company Number: PHHY2011US32794

PATIENT
  Age: 62 Year
  Sex: Female
  Weight: 64.4 kg

DRUGS (6)
  1. NORTRIPTYLINE HCL [Concomitant]
  2. LYRICA [Concomitant]
  3. FISH OIL (FISH OIL) [Concomitant]
  4. CALCIUM WITH VITAMIN D (CALCIUM PHOSPHATE, CALCIUM SODIUM LACTATE, ERG [Concomitant]
  5. GLEEVEC [Suspect]
     Dosage: 300 MG, DAILY, ORAL
     Route: 048
  6. WELCHOL [Concomitant]

REACTIONS (2)
  - RASH [None]
  - ORAL CANDIDIASIS [None]
